FAERS Safety Report 5070226-5 (Version None)
Quarter: 2006Q3

REPORT INFORMATION
  Report Type: 
  Country: None (occurrence: None)
  Receive Date: 20060731
  Receipt Date: 20060721
  Transmission Date: 20061208
  Serious: Yes (Other)
  Sender: FDA-Public Use
  Company Number: 227796

PATIENT
  Age: 75 Year
  Sex: Male

DRUGS (12)
  1. RITUXAN [Suspect]
     Indication: NON-HODGKIN'S LYMPHOMA
     Dosage: 560 MG, INTRAVENOUS
     Route: 042
     Dates: start: 20050329, end: 20051227
  2. DOXORUBICIN HCL [Suspect]
     Indication: NON-HODGKIN'S LYMPHOMA
     Dosage: 75 MG, INTRAVENOUS
     Route: 042
     Dates: start: 20050304, end: 20050725
  3. CYCLOPHOSPHAMIDE [Suspect]
     Indication: NON-HODGKIN'S LYMPHOMA
     Dosage: 1100 MG, INTRAVENOUS
     Route: 042
     Dates: start: 20050304, end: 20060725
  4. VINCRISTINE [Suspect]
     Indication: NON-HODGKIN'S LYMPHOMA
     Dosage: 2 MG, INTRAVENOUS
     Route: 042
     Dates: start: 20050304, end: 20050725
  5. PREDNISOLONE [Suspect]
     Indication: NON-HODGKIN'S LYMPHOMA
     Dosage: 100 MG, ORAL
     Route: 048
     Dates: start: 20050304, end: 20050725
  6. DECADRON [Concomitant]
  7. ASCORBIC ACID [Concomitant]
  8. KYTRIL [Concomitant]
  9. LASIX [Concomitant]
  10. FAMOTIDINE [Concomitant]
  11. IBUPROFEN [Concomitant]
  12. POLARAMINE [Concomitant]

REACTIONS (1)
  - WHITE BLOOD CELL COUNT DECREASED [None]
